FAERS Safety Report 11402578 (Version 1)
Quarter: 2015Q3

REPORT INFORMATION
  Report Type: Spontaneous
  Country: US (occurrence: None)
  Receive Date: 20150820
  Receipt Date: 20150820
  Transmission Date: 20151125
  Serious: Yes (Death)
  Sender: FDA-Public Use
  Company Number: None

PATIENT
  Age: 52 Year
  Sex: Male
  Weight: 178 kg

DRUGS (1)
  1. INVOKANA [Suspect]
     Active Substance: CANAGLIFLOZIN
     Indication: DIABETES MELLITUS
     Dates: start: 20140523, end: 20141008

REACTIONS (4)
  - Weight decreased [None]
  - Pancreatic neoplasm [None]
  - Jaundice [None]
  - Feeling abnormal [None]

NARRATIVE: CASE EVENT DATE: 20141010
